FAERS Safety Report 7811090-8 (Version None)
Quarter: 2011Q4

REPORT INFORMATION
  Report Type: 
  Country: None (occurrence: None)
  Receive Date: 20111013
  Receipt Date: 20110929
  Transmission Date: 20120403
  Serious: Yes (Hospitalization)
  Sender: FDA-Public Use
  Company Number: SE-MYLANLABS-2011S1020352

PATIENT
  Sex: Female

DRUGS (14)
  1. PROPAVAN [Suspect]
     Route: 064
  2. FOLACIN /00024201/ [Concomitant]
     Indication: PRODUCT USED FOR UNKNOWN INDICATION
  3. TEGRETOL [Suspect]
     Route: 064
  4. ALFENTANIL [Suspect]
     Route: 064
     Dates: start: 20110713, end: 20110713
  5. NITRAZEPAM [Suspect]
     Route: 064
  6. CILAXORAL [Concomitant]
     Indication: PRODUCT USED FOR UNKNOWN INDICATION
     Dosage: DOSE UNIT:7.5 MILLIGRAMS PER MILLILITRE*
     Route: 048
  7. VENLAFAXINE HCL [Suspect]
     Route: 064
  8. PENTOTHAL [Suspect]
     Route: 064
     Dates: start: 20110713, end: 20110713
  9. SUCCINYLCHOLINE CHLORIDE [Suspect]
     Route: 064
     Dates: start: 20110713, end: 20110713
  10. ZOLPIDEM TARTRATE [Suspect]
     Route: 064
  11. BACLOFEN [Suspect]
     Route: 064
  12. LYRICA [Suspect]
     Route: 064
  13. KALCIPOS [Concomitant]
     Indication: PRODUCT USED FOR UNKNOWN INDICATION
  14. TRANDATE [Concomitant]
     Indication: PRODUCT USED FOR UNKNOWN INDICATION

REACTIONS (3)
  - FATIGUE [None]
  - RESPIRATORY DEPRESSION [None]
  - MATERNAL EXPOSURE DURING PREGNANCY [None]
